FAERS Safety Report 10258084 (Version 1)
Quarter: 2014Q2

REPORT INFORMATION
  Report Type: Spontaneous
  Country: US (occurrence: US)
  Receive Date: 20140625
  Receipt Date: 20140625
  Transmission Date: 20141212
  Serious: Yes (Other)
  Sender: FDA-Public Use
  Company Number: US-JNJFOC-20140612841

PATIENT
  Sex: Male
  Weight: 79.38 kg

DRUGS (1)
  1. XARELTO [Suspect]
     Indication: PULMONARY EMBOLISM
     Route: 048
     Dates: start: 201306

REACTIONS (3)
  - Osteomyelitis [Not Recovered/Not Resolved]
  - Ulcer [Not Recovered/Not Resolved]
  - Incorrect dose administered [Unknown]
